FAERS Safety Report 18615689 (Version 1)
Quarter: 2020Q4

REPORT INFORMATION
  Report Type: Spontaneous
  Country: US (occurrence: US)
  Receive Date: 20201214
  Receipt Date: 20201214
  Transmission Date: 20210114
  Serious: No
  Sender: FDA-Public Use
  Company Number: US-LUPIN PHARMACEUTICALS INC.-2020-07329

PATIENT
  Age: 72 Year
  Sex: Male

DRUGS (4)
  1. RUXOLITINIB [Concomitant]
     Active Substance: RUXOLITINIB
     Indication: MYELOFIBROSIS
     Dosage: 15 MILLIGRAM BID
     Route: 065
  2. ITRACONAZOLE. [Concomitant]
     Active Substance: ITRACONAZOLE
     Indication: DISSEMINATED COCCIDIOIDOMYCOSIS
     Dosage: UNK
     Route: 065
  3. AMPHOTERICIN-B [Concomitant]
     Active Substance: AMPHOTERICIN B
     Indication: DISSEMINATED COCCIDIOIDOMYCOSIS
     Dosage: UNK
     Route: 065
  4. VORICONAZOLE. [Suspect]
     Active Substance: VORICONAZOLE
     Indication: DISSEMINATED COCCIDIOIDOMYCOSIS
     Dosage: UNK
     Route: 065

REACTIONS (1)
  - Photosensitivity reaction [Unknown]
